FAERS Safety Report 4782406-4 (Version None)
Quarter: 2005Q3

REPORT INFORMATION
  Report Type: 
  Country: None (occurrence: None)
  Receive Date: 20050929
  Receipt Date: 20050919
  Transmission Date: 20060218
  Serious: Yes (Other)
  Sender: FDA-Public Use
  Company Number: US-JNJFOC-20050804001

PATIENT
  Sex: Male
  Weight: 61.69 kg

DRUGS (9)
  1. REMICADE [Suspect]
     Route: 042
  2. REMICADE [Suspect]
     Route: 042
  3. REMICADE [Suspect]
     Indication: CROHN'S DISEASE
     Route: 042
  4. IMURAN [Concomitant]
     Indication: CROHN'S DISEASE
  5. PANTINOL [Concomitant]
  6. LIVOSTIN [Concomitant]
  7. CROMOLYN SODIUM [Concomitant]
  8. ZYRTEC [Concomitant]
  9. COLAZAL [Concomitant]
     Indication: CROHN'S DISEASE
     Dosage: 3 TABS

REACTIONS (1)
  - SWELLING FACE [None]
